FAERS Safety Report 15893725 (Version 1)
Quarter: 2019Q1

REPORT INFORMATION
  Report Type: Spontaneous
  Country: FR (occurrence: FR)
  Receive Date: 20190131
  Receipt Date: 20190131
  Transmission Date: 20190417
  Serious: Yes (Other)
  Sender: FDA-Public Use
  Company Number: FR-TEVA-2019-FR-1004442

PATIENT
  Age: 75 Year
  Sex: Male
  Weight: 65 kg

DRUGS (2)
  1. RIBAVIRINE [Suspect]
     Active Substance: RIBAVIRIN
     Indication: CHRONIC HEPATITIS C
     Dosage: 1000 MILLIGRAM DAILY;
     Route: 048
     Dates: start: 20140607, end: 201411
  2. SOVALDI [Suspect]
     Active Substance: SOFOSBUVIR
     Indication: CHRONIC HEPATITIS C
     Dosage: 400 MILLIGRAM DAILY;
     Route: 048
     Dates: start: 20140607, end: 201411

REACTIONS (3)
  - Drug ineffective [Not Recovered/Not Resolved]
  - Hepatitis C [Not Recovered/Not Resolved]
  - Hepatitis C RNA positive [Not Recovered/Not Resolved]

NARRATIVE: CASE EVENT DATE: 201412
